FAERS Safety Report 4363744-6 (Version None)
Quarter: 2004Q2

REPORT INFORMATION
  Report Type: 
  Country: None (occurrence: None)
  Receive Date: 20040517
  Receipt Date: 20040415
  Transmission Date: 20050107
  Serious: No
  Sender: FDA-Public Use
  Company Number: S04-USA-02135-01

PATIENT

DRUGS (2)
  1. NAMENDA [Suspect]
     Dosage: 20 MG QD PO
     Route: 048
  2. NAMENDA [Suspect]

REACTIONS (1)
  - MYOCLONUS [None]
